FAERS Safety Report 20127021 (Version 1)
Quarter: 2021Q4

REPORT INFORMATION
  Report Type: Spontaneous
  Country: US (occurrence: US)
  Receive Date: 20211129
  Receipt Date: 20211129
  Transmission Date: 20220303
  Serious: Yes (Life-Threatening)
  Sender: FDA-Public Use
  Company Number: US-SCILEX PHARMACEUTICALS INC.-2021SCX00044

PATIENT
  Age: 15 Month
  Sex: Female

DRUGS (2)
  1. LIDOCAINE [Suspect]
     Active Substance: LIDOCAINE
     Route: 048
  2. PRILOCAINE [Suspect]
     Active Substance: PRILOCAINE
     Route: 048

REACTIONS (4)
  - Accidental exposure to product by child [Recovered/Resolved]
  - Local anaesthetic systemic toxicity [Recovered/Resolved]
  - Status epilepticus [Recovered/Resolved]
  - Respiratory failure [Recovered/Resolved]
